FAERS Safety Report 4636870-1 (Version None)
Quarter: 2005Q2

REPORT INFORMATION
  Report Type: 
  Country: None (occurrence: None)
  Receive Date: 20050413
  Receipt Date: 20050413
  Transmission Date: 20051028
  Serious: Yes (Other)
  Sender: FDA-Public Use
  Company Number: None

PATIENT
  Age: 30 Year
  Sex: Female
  Weight: 90.7194 kg

DRUGS (2)
  1. PAXIL [Suspect]
     Indication: ANXIETY
     Dosage: 1X^S    DAILY   ORAL
     Route: 048
  2. PAXIL [Suspect]
     Indication: DEPRESSION
     Dosage: 1X^S    DAILY   ORAL
     Route: 048

REACTIONS (10)
  - BALANCE DISORDER [None]
  - DEPRESSION [None]
  - DIZZINESS [None]
  - DRUG DEPENDENCE [None]
  - HEADACHE [None]
  - LOSS OF CONSCIOUSNESS [None]
  - MOOD SWINGS [None]
  - NECK PAIN [None]
  - PARAESTHESIA [None]
  - TREMOR [None]
